FAERS Safety Report 6669033-9 (Version None)
Quarter: 2010Q2

REPORT INFORMATION
  Report Type: 
  Country: None (occurrence: None)
  Receive Date: 20100406
  Receipt Date: 20100331
  Transmission Date: 20101027
  Serious: Yes (Death, Hospitalization, Other)
  Sender: FDA-Public Use
  Company Number: JP-BAYER-200811094BYL

PATIENT
  Age: 65 Year
  Sex: Male
  Weight: 83 kg

DRUGS (6)
  1. NEXAVAR [Suspect]
     Indication: RENAL CELL CARCINOMA
     Dosage: TOTAL DAILY DOSE: 800 MG  UNIT DOSE: 200 MG
     Route: 048
     Dates: start: 20080423, end: 20080520
  2. NEXAVAR [Suspect]
     Dosage: UNIT DOSE: 200 MG
     Route: 048
     Dates: start: 20080625, end: 20090507
  3. NEXAVAR [Suspect]
     Dosage: UNIT DOSE: 200 MG
     Route: 048
     Dates: start: 20080611, end: 20080624
  4. ADALAT CC [Concomitant]
     Indication: HYPERTENSION
     Dosage: TOTAL DAILY DOSE: 20 MG  UNIT DOSE: 20 MG
     Route: 048
     Dates: start: 20080507, end: 20080604
  5. ADALAT CC [Concomitant]
     Dosage: UNIT DOSE: 20 MG
     Route: 048
     Dates: start: 20080903, end: 20090613
  6. CARVEDILOL [Concomitant]
     Indication: ONCOLOGIC COMPLICATION
     Route: 048
     Dates: start: 20080521, end: 20090613

REACTIONS (11)
  - BLOOD AMYLASE INCREASED [None]
  - CONSTIPATION [None]
  - DIARRHOEA [None]
  - GASTRITIS [None]
  - GOUT [None]
  - HYPERTENSION [None]
  - PALMAR-PLANTAR ERYTHRODYSAESTHESIA SYNDROME [None]
  - PLEURAL EFFUSION [None]
  - RENAL CELL CARCINOMA [None]
  - SKIN ULCER [None]
  - STOMATITIS [None]
